FAERS Safety Report 19972804 (Version 1)
Quarter: 2021Q4

REPORT INFORMATION
  Report Type: Spontaneous
  Country: US (occurrence: US)
  Receive Date: 20211019
  Receipt Date: 20211019
  Transmission Date: 20220303
  Serious: Yes (Other)
  Sender: FDA-Public Use
  Company Number: None

PATIENT
  Age: 60 Year
  Sex: Female
  Weight: 92.7 kg

DRUGS (13)
  1. FENTANYL TRANSDERMAL SYSTEM [Suspect]
     Active Substance: FENTANYL
     Indication: Lower limb fracture
     Dosage: ?          QUANTITY:15 PATCH(ES);OTHER FREQUENCY:48 HOURS;
     Route: 062
     Dates: start: 20210913, end: 20211017
  2. MIRAPEX [Concomitant]
     Active Substance: PRAMIPEXOLE DIHYDROCHLORIDE
  3. NORCO [Concomitant]
     Active Substance: ACETAMINOPHEN\HYDROCODONE BITARTRATE
  4. PARAFON FORTE [Concomitant]
     Active Substance: CHLORZOXAZONE
  5. CLONAZEPAM [Concomitant]
     Active Substance: CLONAZEPAM
  6. CLOBETASOL [Concomitant]
     Active Substance: CLOBETASOL
  7. DOVANEX CREAM [Concomitant]
  8. LIDOCAINE [Concomitant]
     Active Substance: LIDOCAINE
  9. ZINC [Concomitant]
     Active Substance: ZINC
  10. IRON [Concomitant]
     Active Substance: IRON
  11. BLOOD BUILDERS [Concomitant]
  12. HYDROCORTISONE [Concomitant]
     Active Substance: HYDROCORTISONE
  13. ASPERCREME NOS [Concomitant]
     Active Substance: MENTHOL\TROLAMINE SALICYLATE

REACTIONS (5)
  - Screaming [None]
  - Device ineffective [None]
  - Manufacturing issue [None]
  - Product quality issue [None]
  - Pain [None]

NARRATIVE: CASE EVENT DATE: 20211017
